FAERS Safety Report 10056054 (Version 1)
Quarter: 2014Q2

REPORT INFORMATION
  Report Type: Spontaneous
  Country: US (occurrence: US)
  Receive Date: 20140403
  Receipt Date: 20140403
  Transmission Date: 20141212
  Serious: No
  Sender: FDA-Public Use
  Company Number: US-009507513-1403USA014687

PATIENT
  Age: 23 Year
  Sex: Female
  Weight: 61.22 kg

DRUGS (1)
  1. NEXPLANON [Suspect]
     Indication: CONTRACEPTION
     Dosage: UNK
     Route: 059
     Dates: start: 20130311, end: 201401

REACTIONS (8)
  - Ovarian cyst [Recovering/Resolving]
  - Depression [Recovering/Resolving]
  - Weight increased [Recovering/Resolving]
  - Hypoaesthesia [Recovering/Resolving]
  - Headache [Recovering/Resolving]
  - Mood swings [Recovering/Resolving]
  - Parosmia [Recovering/Resolving]
  - Thought withdrawal [Recovering/Resolving]
